FAERS Safety Report 9643854 (Version 1)
Quarter: 2013Q4

REPORT INFORMATION
  Report Type: Spontaneous
  Country: US (occurrence: US)
  Receive Date: 20131024
  Receipt Date: 20131024
  Transmission Date: 20140711
  Serious: No
  Sender: FDA-Public Use
  Company Number: US-ASTRAZENECA-2013SE75506

PATIENT
  Sex: Female

DRUGS (5)
  1. CRESTOR [Suspect]
     Route: 048
  2. ASPIRIN [Concomitant]
     Dosage: UNKNOWN UNK
  3. AMLODIPIN [Concomitant]
     Dosage: UNKNOWN UNK
  4. LOSARTAN [Concomitant]
     Dosage: UNKNOWN UNK
  5. SPIRONOLACTONE [Concomitant]
     Dosage: UNKNOWN UNK

REACTIONS (4)
  - Sciatica [Not Recovered/Not Resolved]
  - Neuralgia [Not Recovered/Not Resolved]
  - Sleep disorder due to general medical condition, insomnia type [Not Recovered/Not Resolved]
  - Off label use [Not Recovered/Not Resolved]
